FAERS Safety Report 5680673-6 (Version None)
Quarter: 2008Q1

REPORT INFORMATION
  Report Type: 
  Country: None (occurrence: None)
  Receive Date: 20080326
  Receipt Date: 20071030
  Transmission Date: 20080703
  Serious: No
  Sender: FDA-Public Use
  Company Number: US-BAUSCH-2007BL003925

PATIENT
  Sex: Female

DRUGS (1)
  1. LOTEMAX [Suspect]
     Indication: CONJUNCTIVITIS ALLERGIC
     Route: 047
     Dates: start: 20071029

REACTIONS (2)
  - DYSGEUSIA [None]
  - HEADACHE [None]
